FAERS Safety Report 12777835 (Version 1)
Quarter: 2016Q3

REPORT INFORMATION
  Report Type: Spontaneous
  Country: US (occurrence: US)
  Receive Date: 20160924
  Receipt Date: 20160924
  Transmission Date: 20161109
  Serious: No
  Sender: FDA-Public Use
  Company Number: US-JAZZ-2016-US-010763

PATIENT
  Age: 55 Year
  Sex: Male

DRUGS (12)
  1. MECLIZINE [Concomitant]
     Active Substance: MECLIZINE HYDROCHLORIDE
  2. CLONAZEPAM. [Concomitant]
     Active Substance: CLONAZEPAM
  3. TAMSULOSIN HCL [Concomitant]
     Active Substance: TAMSULOSIN
  4. ALEVE [Concomitant]
     Active Substance: NAPROXEN SODIUM
  5. METFORMIN HCL [Concomitant]
     Active Substance: METFORMIN HYDROCHLORIDE
  6. ANDROGEL [Concomitant]
     Active Substance: TESTOSTERONE
  7. TRIAMTERENE AND HYDROCHLOROTHIAZIDE [Concomitant]
     Active Substance: HYDROCHLOROTHIAZIDE\TRIAMTERENE
  8. LISINOPRIL. [Concomitant]
     Active Substance: LISINOPRIL
  9. LIPITOR [Concomitant]
     Active Substance: ATORVASTATIN CALCIUM
  10. MODAFINIL. [Concomitant]
     Active Substance: MODAFINIL
  11. XYREM [Suspect]
     Active Substance: SODIUM OXYBATE
     Indication: PRODUCT USED FOR UNKNOWN INDICATION
     Dosage: 2.25 G, BID
     Route: 048
     Dates: start: 201606
  12. MAXIMUM D3 [Concomitant]
     Active Substance: CHOLECALCIFEROL

REACTIONS (1)
  - Insomnia [Not Recovered/Not Resolved]

NARRATIVE: CASE EVENT DATE: 201606
